FAERS Safety Report 6317995-1 (Version None)
Quarter: 2009Q3

REPORT INFORMATION
  Report Type: 
  Country: None (occurrence: None)
  Receive Date: 20090821
  Receipt Date: 20090810
  Transmission Date: 20100115
  Serious: Yes (Other)
  Sender: FDA-Public Use
  Company Number: US-PFIZER INC-2009254062

PATIENT
  Sex: Female
  Weight: 86.168 kg

DRUGS (8)
  1. DETROL LA [Suspect]
     Indication: HYPERTONIC BLADDER
     Dosage: 4 MG, 1X/DAY
     Route: 048
  2. PROZAC [Concomitant]
     Dosage: UNK
  3. MELOXICAM [Concomitant]
     Dosage: UNK
  4. TIMOLOL MALEATE [Concomitant]
     Dosage: UNK
  5. SIMVASTATIN [Concomitant]
     Dosage: UNK
  6. TRAZODONE [Concomitant]
     Dosage: UNK
  7. ACETYLSALICYLIC ACID [Concomitant]
     Dosage: UNK
  8. PLAVIX [Concomitant]
     Dosage: UNK

REACTIONS (7)
  - CONSTIPATION [None]
  - DRUG INEFFECTIVE [None]
  - DRUG INTOLERANCE [None]
  - DRY EYE [None]
  - DRY MOUTH [None]
  - FOOT OPERATION [None]
  - URINE ODOUR ABNORMAL [None]
